FAERS Safety Report 7003802-0 (Version None)
Quarter: 2010Q3

REPORT INFORMATION
  Report Type: 
  Country: None (occurrence: None)
  Receive Date: 20100920
  Receipt Date: 20100104
  Transmission Date: 20110219
  Serious: Yes (Other)
  Sender: FDA-Public Use
  Company Number: US-WYE-H11627509

PATIENT
  Sex: Male
  Weight: 80.81 kg

DRUGS (6)
  1. TORISEL [Suspect]
     Indication: RENAL CELL CARCINOMA
     Route: 042
     Dates: start: 20090924, end: 20091015
  2. TORISEL [Suspect]
     Dosage: NOT PROVIDED
     Route: 042
     Dates: start: 20091028, end: 20091124
  3. CLONAZEPAM [Concomitant]
     Dosage: NOT PROVIDED
     Route: 065
  4. ARIXTRA [Concomitant]
     Indication: PULMONARY EMBOLISM
     Route: 065
  5. LEXAPRO [Concomitant]
     Dosage: NOT PROVIDED
     Route: 065
  6. PEPCID [Concomitant]
     Dosage: NOT PROVIDED
     Route: 065

REACTIONS (1)
  - HYPERLIPIDAEMIA [None]
